FAERS Safety Report 9578680 (Version 2)
Quarter: 2014Q1

REPORT INFORMATION
  Report Type: Spontaneous
  Country: US (occurrence: US)
  Receive Date: 20131001
  Receipt Date: 20140227
  Transmission Date: 20141002
  Serious: No
  Sender: FDA-Public Use
  Company Number: US-AMGEN-USASP2013014267

PATIENT
  Age: 53 Year
  Sex: Female
  Weight: 93.42 kg

DRUGS (10)
  1. ENBREL [Suspect]
     Indication: SJOGREN^S SYNDROME
     Dosage: UNK
     Route: 058
     Dates: start: 201209, end: 201307
  2. ENBREL [Suspect]
     Indication: RHEUMATOID ARTHRITIS
  3. HYDROXYCHLOROQUINE [Concomitant]
     Dosage: 200 MG, UNK
  4. LYRICA [Concomitant]
     Dosage: 25 MG, UNK
  5. LEUCOVORIN                         /00566701/ [Concomitant]
     Dosage: 350 MG, UNK
  6. MELOXICAM [Concomitant]
     Dosage: 7.5 MG, UNK
  7. TRAMADOL HCL [Concomitant]
     Dosage: 50 MG, UNK
  8. NUVIGIL [Concomitant]
     Dosage: 50 MG, UNK
  9. CLOPIDOGREL [Concomitant]
     Dosage: 75 MG, UNK
  10. METHOTREXATE [Concomitant]
     Dosage: 1 GM/40ML

REACTIONS (9)
  - Activities of daily living impaired [Unknown]
  - Fatigue [Unknown]
  - Hypersomnia [Unknown]
  - Arthralgia [Not Recovered/Not Resolved]
  - Pain in extremity [Not Recovered/Not Resolved]
  - Joint swelling [Recovered/Resolved]
  - Local swelling [Recovered/Resolved]
  - Injection site bruising [Unknown]
  - Injection site pain [Unknown]
